FAERS Safety Report 7656144-4 (Version None)
Quarter: 2011Q3

REPORT INFORMATION
  Report Type: 
  Country: None (occurrence: None)
  Receive Date: 20110801
  Receipt Date: 20110726
  Transmission Date: 20111222
  Serious: Yes (Life-Threatening)
  Sender: FDA-Public Use
  Company Number: 2011SP034950

PATIENT
  Age: 76 Year
  Sex: Male

DRUGS (5)
  1. PEGASYS [Suspect]
     Indication: HEPATITIS C
     Dosage: 108 MCG;QW;SC
     Route: 058
     Dates: start: 20101112, end: 20110621
  2. SEROQUEL [Concomitant]
  3. CYMBALTA [Concomitant]
  4. NEORECORMON [Concomitant]
  5. REBETOL [Suspect]
     Indication: HEPATITIS C
     Dosage: 800 MG;QD;PO
     Route: 048
     Dates: start: 20110208, end: 20110621

REACTIONS (1)
  - HEPATIC NEOPLASM MALIGNANT [None]
